FAERS Safety Report 5954038-3 (Version None)
Quarter: 2008Q4

REPORT INFORMATION
  Report Type: 
  Country: None (occurrence: None)
  Receive Date: 20081114
  Receipt Date: 20081107
  Transmission Date: 20090506
  Serious: Yes (Other)
  Sender: FDA-Public Use
  Company Number: US-PFIZER INC-2008094643

PATIENT
  Sex: Female
  Weight: 61.2 kg

DRUGS (10)
  1. CHANTIX [Suspect]
     Indication: SMOKING CESSATION THERAPY
     Dates: start: 20080301
  2. ANTIBIOTICS [Concomitant]
  3. COMBIVENT [Concomitant]
  4. ALL OTHER THERAPEUTIC PRODUCTS [Concomitant]
  5. HYDROCHLOROTHIAZIDE [Concomitant]
  6. LISINOPRIL [Concomitant]
  7. VITAMINS [Concomitant]
  8. ANALGESICS [Concomitant]
  9. FLONASE [Concomitant]
  10. FLEXERIL [Concomitant]

REACTIONS (8)
  - ABNORMAL DREAMS [None]
  - BLADDER OPERATION [None]
  - BLOOD GLUCOSE INCREASED [None]
  - CATHETER PLACEMENT [None]
  - GASTROINTESTINAL DISORDER [None]
  - LIMB OPERATION [None]
  - MALAISE [None]
  - NAUSEA [None]
